FAERS Safety Report 6450811-6 (Version None)
Quarter: 2009Q4

REPORT INFORMATION
  Report Type: 
  Country: None (occurrence: None)
  Receive Date: 20091123
  Receipt Date: 20091113
  Transmission Date: 20100525
  Serious: Yes (Other)
  Sender: FDA-Public Use
  Company Number: NL-ABBOTT-09P-114-0608880-00

PATIENT
  Sex: Female

DRUGS (2)
  1. HUMIRA [Suspect]
     Indication: PSORIASIS
     Route: 058
     Dates: start: 20090701
  2. BETAMETHASON OINTMENT [Concomitant]
     Indication: PSORIASIS
     Dosage: A WEEK
     Route: 061

REACTIONS (2)
  - TOOTH FRACTURE [None]
  - TOOTH LOSS [None]
